FAERS Safety Report 6519894-9 (Version None)
Quarter: 2009Q4

REPORT INFORMATION
  Report Type: 
  Country: None (occurrence: None)
  Receive Date: 20091229
  Receipt Date: 20091222
  Transmission Date: 20100525
  Serious: Yes (Hospitalization, Other)
  Sender: FDA-Public Use
  Company Number: US-BIOGENIDEC-2008BI005986

PATIENT
  Age: 64 Year
  Sex: Male

DRUGS (2)
  1. TYSABRI [Suspect]
     Indication: MULTIPLE SCLEROSIS
     Route: 042
     Dates: start: 20071016, end: 20080304
  2. AVONEX [Concomitant]
     Indication: MULTIPLE SCLEROSIS
     Route: 030
     Dates: start: 19961001

REACTIONS (7)
  - CHRONIC RESPIRATORY FAILURE [None]
  - COLLAPSE OF LUNG [None]
  - DECUBITUS ULCER [None]
  - NAUSEA [None]
  - PNEUMONIA [None]
  - URINARY TRACT INFECTION [None]
  - UROSEPSIS [None]
